FAERS Safety Report 6687277-7 (Version None)
Quarter: 2010Q2

REPORT INFORMATION
  Report Type: 
  Country: None (occurrence: None)
  Receive Date: 20100415
  Receipt Date: 20100403
  Transmission Date: 20101027
  Serious: Yes (Hospitalization)
  Sender: FDA-Public Use
  Company Number: 2009-04568

PATIENT
  Age: 49 Year
  Sex: Male
  Weight: 70.7 kg

DRUGS (4)
  1. VELCADE [Suspect]
     Indication: NEOPLASM
     Dosage: 1 MG/M2, UNK, IV BOLUS
     Route: 040
     Dates: start: 20090922, end: 20091023
  2. 17-AAG (17-AAG) INFUSION [Suspect]
     Indication: NEOPLASM
     Dosage: 250 MG/M2, UNK, INTRAVENOUS
     Route: 042
     Dates: start: 20090922, end: 20091023
  3. FOLBEE PLUS (FOLBEE PLUS) [Concomitant]
  4. LOVENOX [Concomitant]

REACTIONS (8)
  - BLOOD CREATININE INCREASED [None]
  - DEHYDRATION [None]
  - HAEMOGLOBIN DECREASED [None]
  - HYPOPHOSPHATAEMIA [None]
  - NAUSEA [None]
  - RENAL FAILURE ACUTE [None]
  - SMALL INTESTINAL OBSTRUCTION [None]
  - SYNCOPE [None]
